FAERS Safety Report 26098170 (Version 1)
Quarter: 2025Q4

REPORT INFORMATION
  Report Type: Report from Study
  Country: GB (occurrence: GB)
  Receive Date: 20251127
  Receipt Date: 20251127
  Transmission Date: 20260117
  Serious: Yes (Hospitalization)
  Sender: ROCHE
  Company Number: GB-ROCHE-3569490

PATIENT
  Sex: Female

DRUGS (2)
  1. RISDIPLAM [Suspect]
     Active Substance: RISDIPLAM
     Indication: Product used for unknown indication
     Dosage: SHE WAS TAKING 6.1 ML DAILY.
     Route: 065
     Dates: start: 202208
  2. RISDIPLAM [Suspect]
     Active Substance: RISDIPLAM
     Dosage: 0.75MG/ML 1 PER WEEK
     Route: 065
     Dates: start: 202208

REACTIONS (1)
  - Spinal disorder [Unknown]
